FAERS Safety Report 17282340 (Version 1)
Quarter: 2020Q1

REPORT INFORMATION
  Report Type: Spontaneous
  Country: US (occurrence: US)
  Receive Date: 20200117
  Receipt Date: 20200117
  Transmission Date: 20200409
  Serious: Yes (Life-Threatening, Disabling, Other)
  Sender: FDA-Public Use
  Company Number: None

PATIENT
  Age: 36 Year
  Sex: Female
  Weight: 56.25 kg

DRUGS (4)
  1. EMGALITY [Suspect]
     Active Substance: GALCANEZUMAB-GNLM
     Indication: MIGRAINE
     Dosage: ?          OTHER FREQUENCY:ONCE MONTHLY;?
     Route: 058
     Dates: start: 20190913, end: 20190914
  2. MARLISSA [Concomitant]
     Active Substance: ETHINYL ESTRADIOL\LEVONORGESTREL
  3. METOPROLOL. [Concomitant]
     Active Substance: METOPROLOL
  4. GABAPENTIN. [Concomitant]
     Active Substance: GABAPENTIN

REACTIONS (22)
  - Muscle spasms [None]
  - Body temperature fluctuation [None]
  - Constipation [None]
  - Dyspnoea [None]
  - Pain in extremity [None]
  - Nausea [None]
  - Arthralgia [None]
  - Arrhythmia [None]
  - Laboratory test abnormal [None]
  - Migraine [None]
  - Injection site swelling [None]
  - Anaphylactic reaction [None]
  - Hypertension [None]
  - Fatigue [None]
  - Syncope [None]
  - Injection site pain [None]
  - Glossitis [None]
  - Drug ineffective [None]
  - Back pain [None]
  - Tachycardia [None]
  - Alopecia [None]
  - Impaired healing [None]

NARRATIVE: CASE EVENT DATE: 20190913
